FAERS Safety Report 4446569-2 (Version None)
Quarter: 2004Q3

REPORT INFORMATION
  Report Type: 
  Country: None (occurrence: None)
  Receive Date: 20040908
  Receipt Date: 20040823
  Transmission Date: 20050211
  Serious: Yes (Hospitalization)
  Sender: FDA-Public Use
  Company Number: IND-AE-04-SAN-001

PATIENT
  Sex: Male

DRUGS (1)
  1. SANCTURA [Suspect]
     Dosage: ORAL
     Route: 048

REACTIONS (1)
  - COLITIS [None]
